FAERS Safety Report 8501094-4 (Version None)
Quarter: 2012Q3

REPORT INFORMATION
  Report Type: 
  Country: None (occurrence: None)
  Receive Date: 20120710
  Receipt Date: 20120704
  Transmission Date: 20120928
  Serious: Yes (Life-Threatening, Hospitalization)
  Sender: FDA-Public Use
  Company Number: CH-ELI_LILLY_AND_COMPANY-CH201207001968

PATIENT
  Sex: Male
  Weight: 80 kg

DRUGS (4)
  1. ASPIRIN [Concomitant]
     Indication: ACUTE CORONARY SYNDROME
     Dosage: UNK, LOADING DOSE
     Dates: start: 20100903, end: 20100903
  2. ASPIRIN [Concomitant]
     Dosage: 100 MG, QD
     Dates: start: 20100904
  3. EFFIENT [Suspect]
     Indication: ACUTE CORONARY SYNDROME
     Dosage: 60 MG, LOADING DOSE
     Dates: start: 20100903, end: 20100903
  4. EFFIENT [Suspect]
     Dosage: 10 MG, QD
     Dates: start: 20100904, end: 20110228

REACTIONS (4)
  - RENAL FAILURE ACUTE [None]
  - RENAL ARTERY OCCLUSION [None]
  - AORTIC ANEURYSM [None]
  - CATHETER SITE HAEMORRHAGE [None]
